FAERS Safety Report 7000121-3 (Version None)
Quarter: 2010Q3

REPORT INFORMATION
  Report Type: 
  Country: None (occurrence: None)
  Receive Date: 20100920
  Receipt Date: 20100601
  Transmission Date: 20110219
  Serious: No
  Sender: FDA-Public Use
  Company Number: US-ASTRAZENECA-2010SE25261

PATIENT
  Sex: Female
  Weight: 90.7 kg

DRUGS (2)
  1. SEROQUEL [Suspect]
     Indication: ANXIETY
     Route: 048
     Dates: start: 20090101
  2. SEROQUEL [Suspect]
     Indication: INSOMNIA
     Route: 048
     Dates: start: 20090101

REACTIONS (3)
  - ANXIETY [None]
  - DRUG DOSE OMISSION [None]
  - INSOMNIA [None]
